FAERS Safety Report 6793420-1 (Version None)
Quarter: 2010Q2

REPORT INFORMATION
  Report Type: 
  Country: None (occurrence: None)
  Receive Date: 20100624
  Receipt Date: 20100222
  Transmission Date: 20101027
  Serious: Yes (Death)
  Sender: FDA-Public Use
  Company Number: US-MYLANLABS-2010S1003110

PATIENT
  Age: 76 Year
  Sex: Female

DRUGS (8)
  1. CLOZAPINE [Suspect]
     Indication: SCHIZOPHRENIA
     Route: 048
     Dates: start: 20060802
  2. RANITIDINE [Concomitant]
  3. SINGULAIR [Concomitant]
  4. COGENTIN [Concomitant]
  5. DEPAKOTE [Concomitant]
  6. WELLBUTRIN SR [Concomitant]
  7. REGLAN [Concomitant]
  8. CALCIUM CARBONATE [Concomitant]

REACTIONS (1)
  - DEATH [None]
